FAERS Safety Report 26051982 (Version 1)
Quarter: 2025Q4

REPORT INFORMATION
  Report Type: Spontaneous
  Country: US (occurrence: US)
  Receive Date: 20251117
  Receipt Date: 20251117
  Transmission Date: 20260117
  Serious: No
  Sender: AMGEN
  Company Number: US-AMGEN-USASP2025223690

PATIENT

DRUGS (3)
  1. REPATHA [Suspect]
     Active Substance: EVOLOCUMAB
     Indication: Product used for unknown indication
     Dosage: UNK
     Route: 065
  2. MOUNJARO [Concomitant]
     Active Substance: TIRZEPATIDE
  3. ZEPBOUND [Concomitant]
     Active Substance: TIRZEPATIDE

REACTIONS (1)
  - Rash erythematous [Recovering/Resolving]
